FAERS Safety Report 6411927-3 (Version None)
Quarter: 2009Q4

REPORT INFORMATION
  Report Type: 
  Country: None (occurrence: None)
  Receive Date: 20091020
  Receipt Date: 20091007
  Transmission Date: 20100525
  Serious: Yes (Death, Hospitalization)
  Sender: FDA-Public Use
  Company Number: 2009AC000194

PATIENT
  Age: 76 Year
  Sex: Female

DRUGS (7)
  1. DIGOXIN [Suspect]
  2. PLENDIL [Concomitant]
  3. ZOCOR [Concomitant]
  4. TOPROL-XL [Concomitant]
  5. LASIX [Concomitant]
  6. COREG [Concomitant]
  7. COUMADIN [Concomitant]

REACTIONS (24)
  - ANAEMIA [None]
  - ANXIETY [None]
  - AORTIC STENOSIS [None]
  - ATRIAL FIBRILLATION [None]
  - CARDIAC FAILURE CONGESTIVE [None]
  - CATARACT [None]
  - CEREBROVASCULAR ACCIDENT [None]
  - DYSPNOEA [None]
  - FEAR [None]
  - HYPERCALCAEMIA [None]
  - HYPERTENSION [None]
  - HYPOPARATHYROIDISM [None]
  - INTERMITTENT CLAUDICATION [None]
  - LEFT ATRIAL DILATATION [None]
  - MITRAL VALVE INCOMPETENCE [None]
  - MULTIPLE INJURIES [None]
  - PATHOGEN RESISTANCE [None]
  - PNEUMONIA [None]
  - RENAL FAILURE [None]
  - RHEUMATIC HEART DISEASE [None]
  - SURGERY [None]
  - UNRESPONSIVE TO STIMULI [None]
  - URINARY TRACT INFECTION [None]
  - WEIGHT INCREASED [None]
